FAERS Safety Report 17010975 (Version 1)
Quarter: 2019Q4

REPORT INFORMATION
  Report Type: Spontaneous
  Country: IT (occurrence: IT)
  Receive Date: 20191108
  Receipt Date: 20191108
  Transmission Date: 20200122
  Serious: Yes (Hospitalization)
  Sender: FDA-Public Use
  Company Number: IT-ASTRAZENECA-2019SF55954

PATIENT
  Age: 54 Year
  Sex: Female

DRUGS (6)
  1. TAVOR [Concomitant]
     Route: 048
  2. TACHIPIRINA [Concomitant]
     Active Substance: ACETAMINOPHEN
     Dosage: 3.0DF UNKNOWN
     Route: 048
  3. DELTACORTENE [Concomitant]
     Active Substance: PREDNISONE
     Dosage: 12.5MG UNKNOWN
     Route: 048
  4. IRESSA [Suspect]
     Active Substance: GEFITINIB
     Indication: LUNG SQUAMOUS CELL CARCINOMA METASTATIC
     Route: 048
     Dates: start: 20191001, end: 20191007
  5. FENTANYL TRANSDERMAL SYSTEM [Concomitant]
     Active Substance: FENTANYL
     Dosage: 1.0DF UNKNOWN
  6. ARIXTRA [Concomitant]
     Active Substance: FONDAPARINUX SODIUM
     Route: 058

REACTIONS (5)
  - Dyspnoea [Recovering/Resolving]
  - Proteinuria [Recovering/Resolving]
  - Epistaxis [Recovering/Resolving]
  - Anaemia [Recovering/Resolving]
  - Aspartate aminotransferase [Recovering/Resolving]

NARRATIVE: CASE EVENT DATE: 20191001
